FAERS Safety Report 21056099 (Version 2)
Quarter: 2022Q3

REPORT INFORMATION
  Report Type: Other
  Country: US (occurrence: None)
  Receive Date: 20220708
  Receipt Date: 20220803
  Transmission Date: 20221026
  Serious: No
  Sender: FDA-Public Use
  Company Number: US-ROCHE-3133411

PATIENT
  Age: 51 Year
  Sex: Female
  Weight: 54.480 kg

DRUGS (7)
  1. OCREVUS [Suspect]
     Active Substance: OCRELIZUMAB
     Indication: Relapsing-remitting multiple sclerosis
     Dosage: NO
     Route: 042
     Dates: start: 202104, end: 20210429
  2. OCREVUS [Suspect]
     Active Substance: OCRELIZUMAB
     Dosage: YES
     Route: 042
     Dates: start: 20211101
  3. SIMVASTATIN [Concomitant]
     Active Substance: SIMVASTATIN
     Indication: Blood cholesterol increased
     Dosage: STARTED ABOUT 10 YEARS OR MORE
     Route: 048
  4. LEVOTHYROXINE [Concomitant]
     Active Substance: LEVOTHYROXINE
     Indication: Goitre
     Dosage: STARTED ABOUT 2005 OR 2006
     Route: 048
  5. LORATADINE [Concomitant]
     Active Substance: LORATADINE
     Dosage: START DATE UNKNWON
     Route: 048
  6. FLUTICASONE [Concomitant]
     Active Substance: FLUTICASONE
     Indication: Asthma
     Dosage: 1 SPRAY AS NEEDED STARTED A LONG TIME AGO MAYBE --2017 200/25MCG
     Route: 045
  7. ALBUTEROL [Concomitant]
     Active Substance: ALBUTEROL
     Indication: Asthma
     Dosage: 2 PUFFS AS NEEDED STARTED A LONG TIME AGO MAYBE 10 TO 15 YEARS
     Route: 055

REACTIONS (9)
  - COVID-19 [Not Recovered/Not Resolved]
  - Blister [Recovered/Resolved]
  - Swelling [Recovered/Resolved]
  - Pain [Recovering/Resolving]
  - Hypoaesthesia [Recovered/Resolved]
  - Gait disturbance [Unknown]
  - Back pain [Unknown]
  - Sleep disorder [Unknown]
  - Muscular weakness [Unknown]

NARRATIVE: CASE EVENT DATE: 20220701
